FAERS Safety Report 6165736-3 (Version None)
Quarter: 2009Q2

REPORT INFORMATION
  Report Type: 
  Country: None (occurrence: None)
  Receive Date: 20090422
  Receipt Date: 20090406
  Transmission Date: 20091009
  Serious: Yes (Hospitalization)
  Sender: FDA-Public Use
  Company Number: 200917741GPV

PATIENT
  Age: 67 Year
  Sex: Female

DRUGS (6)
  1. FLUDARABINE PHOSPHATE [Suspect]
     Indication: CHRONIC LYMPHOCYTIC LEUKAEMIA REFRACTORY
     Dosage: 40 MG/M2 ORAL
     Route: 048
     Dates: start: 20090126
  2. DASATINIB (DASATINIB) [Suspect]
     Indication: CHRONIC LYMPHOCYTIC LEUKAEMIA REFRACTORY
     Dosage: 100 MG ORAL
     Route: 048
     Dates: start: 20081222
  3. GABAPENTIN [Concomitant]
  4. PANTOPRAZOLE SODIUM [Concomitant]
  5. VALACYCLOVIR HCL [Concomitant]
  6. VALACYCLOVIR (VALACICLOVIR) [Concomitant]

REACTIONS (5)
  - FEBRILE NEUTROPENIA [None]
  - HAEMOGLOBIN DECREASED [None]
  - PLATELET COUNT DECREASED [None]
  - PLEURAL EFFUSION [None]
  - WHITE BLOOD CELL COUNT DECREASED [None]
